FAERS Safety Report 8507542-8 (Version None)
Quarter: 2012Q3

REPORT INFORMATION
  Report Type: 
  Country: None (occurrence: None)
  Receive Date: 20120713
  Receipt Date: 20120629
  Transmission Date: 20120928
  Serious: Yes (Death, Hospitalization)
  Sender: FDA-Public Use
  Company Number: US-RANBAXY-2012US-57688

PATIENT
  Age: 88 Year
  Sex: Female

DRUGS (4)
  1. AMIODARONE HCL [Suspect]
     Indication: ATRIAL FIBRILLATION
     Dosage: 200 MG, BID
     Route: 048
  2. NAPROXEN [Suspect]
     Indication: MUSCULOSKELETAL PAIN
     Dosage: 220 MG, BID
     Route: 048
  3. AMIODARONE HCL [Suspect]
     Dosage: 200MG, DAILY
     Route: 048
  4. NAPROXEN [Suspect]
     Indication: ARTHRITIS

REACTIONS (5)
  - DUODENAL ULCER [None]
  - GASTRIC ULCER [None]
  - GASTROINTESTINAL HAEMORRHAGE [None]
  - HYPOTHYROIDISM [None]
  - ANAEMIA [None]
